FAERS Safety Report 8518242-2 (Version None)
Quarter: 2012Q3

REPORT INFORMATION
  Report Type: 
  Country: None (occurrence: None)
  Receive Date: 20120712
  Receipt Date: 20120712
  Transmission Date: 20120928
  Serious: Yes (Other)
  Sender: FDA-Public Use
  Company Number: None

PATIENT
  Sex: Female

DRUGS (1)
  1. ZELBORAF [Suspect]
     Indication: MALIGNANT MELANOMA
     Dosage: MG BID ORAL
     Route: 048
     Dates: start: 20120614, end: 20120709

REACTIONS (4)
  - COLITIS [None]
  - DRUG INTOLERANCE [None]
  - VOMITING [None]
  - NAUSEA [None]
